FAERS Safety Report 23309161 (Version 2)
Quarter: 2024Q1

REPORT INFORMATION
  Report Type: Spontaneous
  Country: US (occurrence: US)
  Receive Date: 20231218
  Receipt Date: 20240220
  Transmission Date: 20240409
  Serious: No
  Sender: FDA-Public Use
  Company Number: US-BIOGEN-2020BI00939783

PATIENT
  Sex: Female

DRUGS (4)
  1. TYSABRI [Suspect]
     Active Substance: NATALIZUMAB
     Indication: Multiple sclerosis
     Route: 050
     Dates: start: 20120516, end: 20231107
  2. TYSABRI [Suspect]
     Active Substance: NATALIZUMAB
     Route: 050
  3. TYSABRI [Suspect]
     Active Substance: NATALIZUMAB
     Route: 050
  4. TYSABRI [Suspect]
     Active Substance: NATALIZUMAB
     Route: 050
     Dates: start: 20240131

REACTIONS (6)
  - Prescribed underdose [Unknown]
  - Dysphonia [Not Recovered/Not Resolved]
  - Gait disturbance [Unknown]
  - COVID-19 [Unknown]
  - Malaise [Unknown]
  - Influenza [Unknown]
